FAERS Safety Report 6761893-6 (Version None)
Quarter: 2010Q2

REPORT INFORMATION
  Report Type: 
  Country: None (occurrence: None)
  Receive Date: 20100609
  Receipt Date: 20100526
  Transmission Date: 20101027
  Serious: Yes (Hospitalization)
  Sender: FDA-Public Use
  Company Number: PHHY2010CH33976

PATIENT
  Age: 55 Year
  Sex: Male

DRUGS (7)
  1. ENTUMIN [Suspect]
     Dosage: 80 MG DAILY
     Dates: start: 20100220, end: 20100302
  2. LEPONEX [Suspect]
     Dosage: 350 MG DAILY
     Dates: end: 20100303
  3. CLOPIXOL ACUTARD [Suspect]
     Dosage: 100 MG DAILY
     Route: 030
     Dates: start: 20100220
  4. CLOPIXOL ACUTARD [Suspect]
     Dosage: 150 MG DAILY
     Route: 030
     Dates: start: 20100303
  5. TALOFEN [Suspect]
     Dosage: 50 MG DAILY
     Dates: start: 20100226
  6. DEPAKENE [Concomitant]
     Dosage: 2000 MG DAILY
  7. AKINETON [Concomitant]
     Dosage: 10 MG DAILY
     Dates: start: 20100220, end: 20100330

REACTIONS (8)
  - CONDITION AGGRAVATED [None]
  - CONFUSIONAL STATE [None]
  - HYPERKALAEMIA [None]
  - MUSCLE RIGIDITY [None]
  - NEUROLEPTIC MALIGNANT SYNDROME [None]
  - RENAL FAILURE ACUTE [None]
  - RHABDOMYOLYSIS [None]
  - TRANSAMINASES INCREASED [None]
